FAERS Safety Report 6058839-5 (Version None)
Quarter: 2009Q1

REPORT INFORMATION
  Report Type: 
  Country: None (occurrence: None)
  Receive Date: 20090130
  Receipt Date: 20090120
  Transmission Date: 20090719
  Serious: Yes (Hospitalization, Other)
  Sender: FDA-Public Use
  Company Number: US-WYE-H07754309

PATIENT
  Age: 20 Year
  Sex: Female

DRUGS (1)
  1. PRISTIQ [Suspect]
     Dosage: 50 MG, FREQUENCY UNKNOWN
     Route: 048

REACTIONS (1)
  - SUICIDAL BEHAVIOUR [None]
